FAERS Safety Report 14159864 (Version 1)
Quarter: 2017Q4

REPORT INFORMATION
  Report Type: Spontaneous
  Country: US (occurrence: US)
  Receive Date: 20171103
  Receipt Date: 20171103
  Transmission Date: 20180321
  Serious: No
  Sender: FDA-Public Use
  Company Number: US-AMGEN-USASP2017113147

PATIENT
  Age: 45 Year
  Sex: Female

DRUGS (2)
  1. EPOGEN [Suspect]
     Active Substance: ERYTHROPOIETIN
     Indication: ANAEMIA
     Dosage: UNK UNK, QWK (ONE DOSE A WEEK FOR THREE WEEKS)
     Route: 065
     Dates: start: 201704, end: 2017
  2. EPOGEN [Suspect]
     Active Substance: ERYTHROPOIETIN
     Dosage: UNK
     Route: 065
     Dates: start: 20170714, end: 20170721

REACTIONS (14)
  - Myalgia [Unknown]
  - Abdominal discomfort [Unknown]
  - Heart rate increased [Unknown]
  - Muscle spasms [Recovering/Resolving]
  - Musculoskeletal discomfort [Unknown]
  - Vomiting [Not Recovered/Not Resolved]
  - Aggression [Unknown]
  - Dyspnoea [Unknown]
  - Feeling hot [Not Recovered/Not Resolved]
  - Bone pain [Unknown]
  - Pain [Not Recovered/Not Resolved]
  - Inflammation [Recovering/Resolving]
  - Insomnia [Not Recovered/Not Resolved]
  - Arthralgia [Unknown]

NARRATIVE: CASE EVENT DATE: 2017
